FAERS Safety Report 25304411 (Version 1)
Quarter: 2025Q2

REPORT INFORMATION
  Report Type: Spontaneous
  Country: US (occurrence: US)
  Receive Date: 20250513
  Receipt Date: 20250513
  Transmission Date: 20250716
  Serious: Yes (Hospitalization, Other)
  Sender: Invivyd
  Company Number: US-INVIVYD-US-INV-25-000019

PATIENT
  Sex: Female

DRUGS (1)
  1. PEMGARDA [Suspect]
     Active Substance: PEMIVIBART
     Indication: Product used for unknown indication
     Route: 065
     Dates: start: 20250321

REACTIONS (2)
  - Bronchiectasis [Unknown]
  - Speech disorder [Unknown]
